FAERS Safety Report 17199649 (Version 1)
Quarter: 2019Q4

REPORT INFORMATION
  Report Type: Spontaneous
  Country: GR (occurrence: GR)
  Receive Date: 20191226
  Receipt Date: 20191226
  Transmission Date: 20200122
  Serious: Yes (Other)
  Sender: FDA-Public Use
  Company Number: GR-SUN PHARMACEUTICAL INDUSTRIES LTD-2019RR-231742

PATIENT
  Age: 74 Year
  Sex: Male

DRUGS (6)
  1. LITHIUM. [Suspect]
     Active Substance: LITHIUM
     Indication: BIPOLAR DISORDER
     Dosage: 900 MILLIGRAMS, DAILY
     Route: 065
  2. BETAXOLOL. [Concomitant]
     Active Substance: BETAXOLOL
     Indication: MYOCARDIAL ISCHAEMIA
     Dosage: 10 MILLIGRAMS, UNK
     Route: 065
  3. THYROXIN [Concomitant]
     Active Substance: LEVOTHYROXINE
     Indication: HYPOTHYROIDISM
     Dosage: 50 MICROGRAMS, DAILY
     Route: 065
  4. EZETIMIB/SIMVASTATIN [Concomitant]
     Indication: MYOCARDIAL ISCHAEMIA
     Dosage: 10/40 MILLIGRAMS, UNK
     Route: 065
  5. TRIFUSAL [Concomitant]
     Indication: MYOCARDIAL ISCHAEMIA
     Dosage: 600 MILLIGRAMS, UNK
     Route: 065
  6. IRBESARTAN/HYDROCHLOROTHIAZIDE [Interacting]
     Active Substance: HYDROCHLOROTHIAZIDE\IRBESARTAN
     Indication: MYOCARDIAL ISCHAEMIA
     Dosage: 300/12 MILLIGRAMS, DAILY
     Route: 065

REACTIONS (2)
  - Toxicity to various agents [Recovering/Resolving]
  - Drug interaction [Unknown]
